FAERS Safety Report 4836562-X (Version None)
Quarter: 2005Q4

REPORT INFORMATION
  Report Type: 
  Country: None (occurrence: None)
  Receive Date: 20051121
  Receipt Date: 20051108
  Transmission Date: 20060501
  Serious: Yes (Other)
  Sender: FDA-Public Use
  Company Number: 2005154349

PATIENT
  Age: 34 Year
  Sex: Female
  Weight: 76 kg

DRUGS (1)
  1. COLESTID [Suspect]
     Indication: MALABSORPTION
     Dosage: 15 GRAM (7.5 GRAM, 2 IN 1 D),
     Dates: start: 20020101

REACTIONS (8)
  - BLOOD PRESSURE DECREASED [None]
  - BREECH PRESENTATION [None]
  - CAESAREAN SECTION [None]
  - DRUG EXPOSURE DURING PREGNANCY [None]
  - HAEMORRHAGE [None]
  - LOSS OF CONSCIOUSNESS [None]
  - PREGNANCY [None]
  - VASCULAR RUPTURE [None]
